FAERS Safety Report 4429701-6 (Version None)
Quarter: 2004Q3

REPORT INFORMATION
  Report Type: 
  Country: None (occurrence: None)
  Receive Date: 20040816
  Receipt Date: 20040803
  Transmission Date: 20050211
  Serious: Yes (Other)
  Sender: FDA-Public Use
  Company Number: 2004053279

PATIENT
  Age: 75 Year
  Sex: Male

DRUGS (5)
  1. LIPITOR [Suspect]
     Indication: ILL-DEFINED DISORDER
     Dosage: 10 MG (10 MG, 1 IN 1 D), ORAL
     Route: 048
  2. DILTIAZEM [Concomitant]
  3. ISOSORBIDE (ISOSORBIDE) [Concomitant]
  4. RANITIDINE [Concomitant]
  5. ENALAPRIL MALEATE [Concomitant]

REACTIONS (4)
  - MYOSITIS [None]
  - PANCREATITIS [None]
  - RENAL FAILURE ACUTE [None]
  - RHABDOMYOLYSIS [None]
